FAERS Safety Report 8569127 (Version 2)
Quarter: 2012Q4

REPORT INFORMATION
  Report Type: 
  Country: US (occurrence: US)
  Receive Date: 20120518
  Receipt Date: 20121018
  Transmission Date: 20130627
  Serious: Yes (Other)
  Sender: FDA-Public Use
  Company Number: US-US-EMD SERONO, INC.-7132326

PATIENT
  Sex: Female

DRUGS (5)
  1. REBIF [Suspect]
     Indication: RELAPSING-REMITTING MULTIPLE SCLEROSIS
     Dates: end: 201112
  2. REBIF [Suspect]
     Route: 058
     Dates: start: 20120318
  3. GILENYA [Suspect]
     Indication: PRODUCT USED FOR UNKNOWN INDICATION
     Dates: start: 201112, end: 201203
  4. GRALISE [Concomitant]
     Indication: NEURALGIA
  5. DITROPAN [Concomitant]
     Indication: POLLAKIURIA

REACTIONS (3)
  - Retinal vein occlusion [Recovered/Resolved]
  - Eye haemorrhage [Not Recovered/Not Resolved]
  - Injection site erythema [Unknown]
